FAERS Safety Report 9476419 (Version 1)
Quarter: 2013Q3

REPORT INFORMATION
  Report Type: Spontaneous
  Country: US (occurrence: US)
  Receive Date: 20130826
  Receipt Date: 20130826
  Transmission Date: 20140515
  Serious: Yes (Other)
  Sender: FDA-Public Use
  Company Number: US-SANOFI-AVENTIS-2013SA083910

PATIENT
  Age: 63 Year
  Sex: Female

DRUGS (7)
  1. AUBAGIO [Suspect]
     Indication: MULTIPLE SCLEROSIS
     Route: 048
     Dates: start: 201301
  2. IMMUNE SERUM GLOBULIN [Concomitant]
     Indication: CHRONIC INFLAMMATORY DEMYELINATING POLYRADICULONEUROPATHY
  3. BOTOX [Concomitant]
     Indication: MIGRAINE
  4. CYMBALTA [Concomitant]
     Indication: URINARY TRACT DISORDER
  5. NORCO [Concomitant]
     Indication: MIGRAINE
  6. ZOMIG [Concomitant]
     Indication: MIGRAINE
  7. RELPAX [Concomitant]
     Indication: MIGRAINE

REACTIONS (1)
  - Tendon rupture [Not Recovered/Not Resolved]
